FAERS Safety Report 6035336-4 (Version None)
Quarter: 2009Q1

REPORT INFORMATION
  Report Type: 
  Country: None (occurrence: None)
  Receive Date: 20090113
  Receipt Date: 20090106
  Transmission Date: 20090719
  Serious: Yes (Other)
  Sender: FDA-Public Use
  Company Number: CH-RANBAXY-2009US-20298

PATIENT

DRUGS (6)
  1. MIDAZOLAM HYDROCHLORIDE [Suspect]
     Indication: DRUG USE FOR UNKNOWN INDICATION
     Route: 065
  2. PROPOFOL [Suspect]
     Indication: ANAESTHESIA
     Dosage: 2 MG/KG, UNK
     Route: 065
  3. FENTANYL [Suspect]
     Indication: ANAESTHESIA
     Dosage: 0.25 MG, UNK
     Route: 065
  4. SEVOFLURANE [Suspect]
     Indication: ANAESTHESIA
     Route: 065
  5. DICLOFENAC SODIUM [Suspect]
     Indication: DRUG USE FOR UNKNOWN INDICATION
     Route: 065
  6. ROCURONIUM BROMIDE [Concomitant]
     Indication: DRUG USE FOR UNKNOWN INDICATION
     Route: 065

REACTIONS (3)
  - HYPERKALAEMIA [None]
  - HYPERTHERMIA MALIGNANT [None]
  - RHABDOMYOLYSIS [None]
